FAERS Safety Report 24369152 (Version 2)
Quarter: 2024Q4

REPORT INFORMATION
  Report Type: Spontaneous
  Country: IN (occurrence: IN)
  Receive Date: 20240927
  Receipt Date: 20241015
  Transmission Date: 20250115
  Serious: Yes (Death, Hospitalization, Other)
  Sender: TAKEDA
  Company Number: IN-TAKEDA-2024TUS094758

PATIENT
  Age: 72 Year
  Sex: Male

DRUGS (1)
  1. ALBUMIN HUMAN [Suspect]
     Active Substance: ALBUMIN HUMAN
     Indication: Product used for unknown indication
     Dosage: UNK
     Route: 065

REACTIONS (6)
  - Respiratory failure [Fatal]
  - Feeling cold [Unknown]
  - Foaming at mouth [Unknown]
  - Muscular weakness [Unknown]
  - Chills [Unknown]
  - Discoloured vomit [Unknown]
